FAERS Safety Report 5281691-2 (Version None)
Quarter: 2007Q1

REPORT INFORMATION
  Report Type: 
  Country: None (occurrence: None)
  Receive Date: 20061218
  Receipt Date: 20060222
  Transmission Date: 20070707
  Serious: Yes (Other)
  Sender: FDA-Public Use
  Company Number: 2006-PI115

PATIENT
  Age: 35 Year
  Sex: Male
  Weight: 80.7403 kg

DRUGS (2)
  1. CHLORAPREP WITH TINT [Suspect]
     Dosage: ONCE, TOPICAL
     Route: 061
  2. FOUR DOSES OF HYDRO/APAP 500MG [Concomitant]

REACTIONS (1)
  - SKIN IRRITATION [None]
